FAERS Safety Report 20488432 (Version 1)
Quarter: 2022Q1

REPORT INFORMATION
  Report Type: Spontaneous
  Country: ES (occurrence: ES)
  Receive Date: 20220218
  Receipt Date: 20220218
  Transmission Date: 20220423
  Serious: Yes (Hospitalization)
  Sender: FDA-Public Use
  Company Number: ES-ABBVIE-22K-144-4282592-00

PATIENT
  Age: 37 Year
  Sex: Male

DRUGS (2)
  1. VALPROATE SODIUM [Interacting]
     Active Substance: VALPROATE SODIUM
     Indication: Epilepsy
     Route: 048
     Dates: start: 20180214
  2. VORTIOXETINE [Suspect]
     Active Substance: VORTIOXETINE
     Indication: Psychotic disorder
     Route: 065
     Dates: start: 20180227, end: 20180419

REACTIONS (2)
  - Status epilepticus [Recovered/Resolved]
  - Drug interaction [Unknown]

NARRATIVE: CASE EVENT DATE: 20180419
